FAERS Safety Report 14755868 (Version 12)
Quarter: 2021Q1

REPORT INFORMATION
  Report Type: Spontaneous
  Country: US (occurrence: US)
  Receive Date: 20180413
  Receipt Date: 20210126
  Transmission Date: 20210419
  Serious: Yes (Other)
  Sender: FDA-Public Use
  Company Number: US-PFIZER INC-2018150681

PATIENT
  Age: 71 Year
  Sex: Female
  Weight: 64.86 kg

DRUGS (3)
  1. IBRANCE [Suspect]
     Active Substance: PALBOCICLIB
     Dosage: 125 MG, UNK
  2. IBRANCE [Suspect]
     Active Substance: PALBOCICLIB
     Indication: BREAST CANCER METASTATIC
     Dosage: 100 MG, CYCLIC
  3. IBRANCE [Suspect]
     Active Substance: PALBOCICLIB
     Dosage: 100 MG, 1X/DAY
     Route: 048

REACTIONS (16)
  - Lumbar vertebral fracture [Unknown]
  - Tooth disorder [Unknown]
  - Abdominal pain upper [Unknown]
  - Nodule [Unknown]
  - Pain [Unknown]
  - Pelvic pain [Unknown]
  - Swelling face [Unknown]
  - Breast pain [Unknown]
  - Anxiety [Unknown]
  - Muscle spasms [Unknown]
  - Body height decreased [Unknown]
  - Mouth swelling [Unknown]
  - Malaise [Unknown]
  - Fall [Unknown]
  - Back pain [Unknown]
  - Weight decreased [Unknown]
